FAERS Safety Report 5159098-8 (Version None)
Quarter: 2006Q4

REPORT INFORMATION
  Report Type: 
  Country: None (occurrence: None)
  Receive Date: 20061117
  Receipt Date: 20061103
  Transmission Date: 20070319
  Serious: Yes (Hospitalization)
  Sender: FDA-Public Use
  Company Number: 2006PV024042

PATIENT
  Age: 64 Year
  Sex: Female
  Weight: 127.9144 kg

DRUGS (8)
  1. BYETTA [Suspect]
     Indication: DIABETES MELLITUS NON-INSULIN-DEPENDENT
     Dosage: 5 MCG; BID; SC
     Route: 058
     Dates: start: 20060817, end: 20060822
  2. ACTOS [Concomitant]
  3. GLIPIZIDE [Concomitant]
  4. METFORMIN HCL [Concomitant]
  5. LIPITOR [Concomitant]
  6. PREVACID [Concomitant]
  7. MAGNESIUM CITRATE [Concomitant]
  8. GLUCOTROL XL [Concomitant]

REACTIONS (6)
  - BLOOD GLUCOSE INCREASED [None]
  - CALCINOSIS [None]
  - DECREASED APPETITE [None]
  - ILEUS [None]
  - PANCREATITIS [None]
  - WEIGHT DECREASED [None]
